FAERS Safety Report 8295076-8 (Version None)
Quarter: 2012Q2

REPORT INFORMATION
  Report Type: 
  Country: None (occurrence: None)
  Receive Date: 20120418
  Receipt Date: 20111031
  Transmission Date: 20120825
  Serious: No
  Sender: FDA-Public Use
  Company Number: US-ASTRAZENECA-2011SE25558

PATIENT
  Age: 85 Year
  Sex: Female
  Weight: 76.2 kg

DRUGS (10)
  1. POTASSIUM CHLORIDE [Concomitant]
  2. METOPROLOL TARTRATE [Concomitant]
     Indication: HYPERTENSION
  3. KLIN [Concomitant]
     Indication: HYPERTENSION
  4. NEXIUM [Suspect]
     Indication: GASTRITIS
     Route: 048
     Dates: start: 20080101
  5. NEXIUM [Suspect]
     Indication: GASTROOESOPHAGEAL REFLUX DISEASE
     Route: 048
     Dates: start: 20080101
  6. LASIX [Concomitant]
     Indication: HYPERTENSION
  7. LIPITOR [Concomitant]
     Indication: HYPERLIPIDAEMIA
  8. SYNTHROID [Concomitant]
     Indication: THYROID DISORDER
  9. FENOFIBRATE [Concomitant]
  10. TRENTAL [Concomitant]

REACTIONS (5)
  - LUNG INFECTION [None]
  - INCORRECT DOSE ADMINISTERED [None]
  - NASOPHARYNGITIS [None]
  - CHRONIC OBSTRUCTIVE PULMONARY DISEASE [None]
  - INFLUENZA [None]
